FAERS Safety Report 25583606 (Version 1)
Quarter: 2025Q3

REPORT INFORMATION
  Report Type: Spontaneous
  Country: EU (occurrence: EU)
  Receive Date: 20250721
  Receipt Date: 20250721
  Transmission Date: 20251021
  Serious: Yes (Life-Threatening, Other)
  Sender: AMGEN
  Company Number: EU-SERVIER-S25010247

PATIENT
  Age: 46 Year
  Sex: Male

DRUGS (2)
  1. IVABRADINE HYDROCHLORIDE [Suspect]
     Active Substance: IVABRADINE HYDROCHLORIDE
     Indication: Heart rate irregular
     Route: 065
     Dates: start: 2023
  2. FUROSEMIDE [Concomitant]
     Active Substance: FUROSEMIDE
     Indication: Polyuria
     Route: 065
     Dates: start: 2023

REACTIONS (6)
  - Ejection fraction decreased [Recovered/Resolved]
  - Blood pressure decreased [Recovered/Resolved]
  - Ventricular tachycardia [Recovered/Resolved]
  - Condition aggravated [Recovered/Resolved]
  - Right ventricular dysfunction [Recovered/Resolved]
  - Product use issue [Recovered/Resolved]

NARRATIVE: CASE EVENT DATE: 20230101
